FAERS Safety Report 9353777 (Version 1)
Quarter: 2013Q2

REPORT INFORMATION
  Report Type: Report from Study
  Country: US (occurrence: US)
  Receive Date: 20130618
  Receipt Date: 20130618
  Transmission Date: 20140414
  Serious: Yes (Other)
  Sender: FDA-Public Use
  Company Number: US-PFIZER INC-2013178277

PATIENT
  Sex: 0

DRUGS (4)
  1. OXALIPLATIN [Suspect]
     Indication: METASTASES TO LIVER
     Dosage: 40 MG/M2, UNK
     Route: 025
  2. OXALIPLATIN [Suspect]
     Indication: COLORECTAL CANCER
  3. FLUOROURACIL [Suspect]
     Indication: METASTASES TO LIVER
     Dosage: 300 MG/M2, UNK
     Route: 025
  4. FLUOROURACIL [Suspect]
     Indication: COLORECTAL CANCER

REACTIONS (2)
  - Haematoma [Unknown]
  - Ascites [Unknown]
